FAERS Safety Report 19814053 (Version 5)
Quarter: 2022Q2

REPORT INFORMATION
  Report Type: Report from Study
  Country: DE (occurrence: None)
  Receive Date: 20210909
  Receipt Date: 20220427
  Transmission Date: 20220721
  Serious: Yes (Hospitalization)
  Sender: FDA-Public Use
  Company Number: DE-ROCHE-2904490

PATIENT
  Age: 67 Year
  Sex: Male
  Weight: 99.5 kg

DRUGS (22)
  1. TIRAGOLUMAB [Suspect]
     Active Substance: TIRAGOLUMAB
     Indication: Non-small cell lung cancer
     Dosage: START DATE OF MOST RECENT DOSE OF STUDY DRUG PRIOR TO SAE: 02/JUN/2021?DAY 1 OF EACH 21-DAY CYCLE
     Route: 042
     Dates: start: 20210331
  2. ATEZOLIZUMAB [Suspect]
     Active Substance: ATEZOLIZUMAB
     Indication: Non-small cell lung cancer
     Dosage: START DATE OF MOST RECENT DOSE OF STUDY DRUG PRIOR TO SAE: 02/JUN/2021?LAST STUDY DRUG ADMIN PRIOR S
     Route: 041
     Dates: start: 20210331
  3. PANTOPRAZOLE SODIUM [Concomitant]
     Active Substance: PANTOPRAZOLE SODIUM
     Route: 048
     Dates: start: 20210617
  4. SULFAMETHOXAZOLE\TRIMETHOPRIM [Concomitant]
     Active Substance: SULFAMETHOXAZOLE\TRIMETHOPRIM
     Route: 048
     Dates: start: 20210617
  5. SULFAMETHOXAZOLE\TRIMETHOPRIM [Concomitant]
     Active Substance: SULFAMETHOXAZOLE\TRIMETHOPRIM
     Route: 048
     Dates: start: 20210726, end: 20210803
  6. PREDNISONE [Concomitant]
     Active Substance: PREDNISONE
     Indication: Dermatitis
     Route: 048
     Dates: start: 20210726, end: 20210802
  7. PREDNISONE [Concomitant]
     Active Substance: PREDNISONE
     Indication: Colitis
     Route: 048
     Dates: start: 20210803, end: 20210809
  8. PREDNISONE [Concomitant]
     Active Substance: PREDNISONE
     Route: 048
     Dates: start: 20210810, end: 20210831
  9. PREDNISONE [Concomitant]
     Active Substance: PREDNISONE
     Route: 042
     Dates: start: 20210831, end: 20210831
  10. PREDNISONE [Concomitant]
     Active Substance: PREDNISONE
     Route: 042
     Dates: start: 20210901, end: 20210902
  11. PREDNISONE [Concomitant]
     Active Substance: PREDNISONE
     Route: 042
     Dates: start: 20210903, end: 20210903
  12. PREDNISONE [Concomitant]
     Active Substance: PREDNISONE
     Route: 048
     Dates: start: 20210904, end: 20210905
  13. PREDNISONE [Concomitant]
     Active Substance: PREDNISONE
     Route: 048
     Dates: start: 20210906, end: 20210915
  14. PREDNISONE [Concomitant]
     Active Substance: PREDNISONE
     Route: 048
     Dates: start: 20210916
  15. CALCIUM CARBONATE [Concomitant]
     Active Substance: CALCIUM CARBONATE
     Route: 048
     Dates: start: 20210726, end: 20210803
  16. DIMETINDEN MALEAT [Concomitant]
     Indication: Dermatitis
     Route: 048
     Dates: start: 20210901, end: 20210901
  17. DIMETINDEN MALEAT [Concomitant]
     Route: 048
     Dates: start: 20210902, end: 20210915
  18. OPTIDERM [Concomitant]
     Indication: Dermatitis
     Route: 061
     Dates: start: 20210901
  19. METFORMIN [Concomitant]
     Active Substance: METFORMIN HYDROCHLORIDE
     Indication: Steroid diabetes
     Route: 048
     Dates: start: 20210906, end: 20210907
  20. ACTRAPID [Concomitant]
     Active Substance: INSULIN HUMAN
     Indication: Steroid diabetes
     Route: 058
     Dates: start: 20210905, end: 20210906
  21. NOVORAPID [Concomitant]
     Active Substance: INSULIN ASPART
     Indication: Steroid diabetes
     Route: 058
     Dates: start: 20210906
  22. FAKTU LIND [Concomitant]
     Indication: Haemorrhoids
     Route: 062
     Dates: start: 20210901

REACTIONS (1)
  - Rash pruritic [Recovered/Resolved]

NARRATIVE: CASE EVENT DATE: 20210831
